FAERS Safety Report 8001505-7 (Version None)
Quarter: 2011Q4

REPORT INFORMATION
  Report Type: 
  Country: None (occurrence: None)
  Receive Date: 20111222
  Receipt Date: 20111220
  Transmission Date: 20120403
  Serious: Yes (Hospitalization)
  Sender: FDA-Public Use
  Company Number: AU-JNJFOC-20111209047

PATIENT
  Sex: Male

DRUGS (5)
  1. STELARA [Suspect]
     Indication: PRODUCT USED FOR UNKNOWN INDICATION
     Route: 058
     Dates: start: 20110425
  2. STELARA [Suspect]
     Route: 058
     Dates: start: 20100712
  3. STELARA [Suspect]
     Route: 058
     Dates: start: 20110124
  4. STELARA [Suspect]
     Route: 058
     Dates: start: 20110711
  5. STELARA [Suspect]
     Route: 058
     Dates: start: 20111003

REACTIONS (4)
  - PNEUMOTHORAX TRAUMATIC [None]
  - LOSS OF CONSCIOUSNESS [None]
  - FALL [None]
  - RIB FRACTURE [None]
